FAERS Safety Report 4784260-3 (Version None)
Quarter: 2005Q3

REPORT INFORMATION
  Report Type: 
  Country: None (occurrence: None)
  Receive Date: 20050930
  Receipt Date: 20040805
  Transmission Date: 20060218
  Serious: Yes (Hospitalization)
  Sender: FDA-Public Use
  Company Number: GB-AMGEN-US088036

PATIENT
  Sex: Female

DRUGS (8)
  1. ENBREL [Suspect]
     Indication: RHEUMATOID ARTHRITIS
     Route: 058
     Dates: start: 20020627, end: 20030415
  2. AMITRIPTYLINE HCL [Concomitant]
     Route: 065
  3. IBUPROFEN [Concomitant]
     Route: 065
  4. PREDNISOLONE [Concomitant]
     Route: 065
     Dates: start: 19950101
  5. OMEPRAZOLE [Concomitant]
     Route: 065
  6. DIDRONEL [Concomitant]
     Route: 065
  7. FOSINOPRIL SODIUM [Concomitant]
     Route: 065
  8. CALCICHEW [Concomitant]

REACTIONS (8)
  - BLOOD PRESSURE INCREASED [None]
  - GRAND MAL CONVULSION [None]
  - MENINGITIS PNEUMOCOCCAL [None]
  - OTITIS MEDIA [None]
  - PYREXIA [None]
  - RENAL FAILURE [None]
  - RESPIRATORY RATE INCREASED [None]
  - TACHYCARDIA [None]
